FAERS Safety Report 8234684-7 (Version None)
Quarter: 2012Q1

REPORT INFORMATION
  Report Type: 
  Country: None (occurrence: None)
  Receive Date: 20120326
  Receipt Date: 20120320
  Transmission Date: 20120608
  Serious: Yes (Hospitalization)
  Sender: FDA-Public Use
  Company Number: IT-PFIZER INC-2012073137

PATIENT
  Sex: Female

DRUGS (2)
  1. AZITHROMYCIN [Suspect]
  2. AMOXICILLIN TRIHYDRATE [Suspect]

REACTIONS (4)
  - ORBITAL OEDEMA [None]
  - HYPERCREATININAEMIA [None]
  - DERMATITIS [None]
  - PYREXIA [None]
